FAERS Safety Report 7777797-6 (Version None)
Quarter: 2011Q3

REPORT INFORMATION
  Report Type: 
  Country: None (occurrence: None)
  Receive Date: 20110926
  Receipt Date: 20110920
  Transmission Date: 20111222
  Serious: No
  Sender: FDA-Public Use
  Company Number: US-BIOGENIDEC-2011BI003685

PATIENT
  Age: 21 Year
  Sex: Female

DRUGS (1)
  1. TYSABRI [Suspect]
     Indication: MULTIPLE SCLEROSIS
     Route: 042
     Dates: start: 20100407

REACTIONS (9)
  - HEADACHE [None]
  - CONJUNCTIVITIS INFECTIVE [None]
  - POST PROCEDURAL COMPLICATION [None]
  - SINUSITIS [None]
  - FATIGUE [None]
  - URINARY TRACT INFECTION [None]
  - SINUS OPERATION [None]
  - TONSILLECTOMY [None]
  - TONSILLITIS [None]
